FAERS Safety Report 5338211-3 (Version None)
Quarter: 2007Q2

REPORT INFORMATION
  Report Type: 
  Country: None (occurrence: None)
  Receive Date: 20070530
  Receipt Date: 20070523
  Transmission Date: 20071010
  Serious: Yes (Hospitalization)
  Sender: FDA-Public Use
  Company Number: DE-JNJFOC-20070506102

PATIENT
  Sex: Female
  Weight: 2.85 kg

DRUGS (1)
  1. IBUPROFEN [Suspect]
     Indication: DRUG EXPOSURE DURING PREGNANCY
     Route: 015

REACTIONS (6)
  - CARDIAC HYPERTROPHY [None]
  - DUCTUS ARTERIOSUS PREMATURE CLOSURE [None]
  - NEONATAL CARDIAC FAILURE [None]
  - PREMATURE BABY [None]
  - PULMONARY VALVE INCOMPETENCE [None]
  - TRICUSPID VALVE INCOMPETENCE [None]
